FAERS Safety Report 9009353 (Version 2)
Quarter: 2013Q1

REPORT INFORMATION
  Report Type: Spontaneous
  Country: US (occurrence: US)
  Receive Date: 20130111
  Receipt Date: 20130301
  Transmission Date: 20140127
  Serious: No
  Sender: FDA-Public Use
  Company Number: US-PFIZER INC-2013012839

PATIENT
  Age: 77 Year
  Sex: Female
  Weight: 77.1 kg

DRUGS (4)
  1. SUTENT [Suspect]
     Indication: RENAL CELL CARCINOMA
     Dosage: 50 MG, UNK
     Dates: start: 20121203
  2. SUTENT [Suspect]
     Indication: CHRONIC LYMPHOCYTIC LEUKAEMIA
  3. AMLODIPINE [Concomitant]
     Indication: HYPERTENSION
     Dosage: 2.5 MG, DAILY
  4. LISINOPRIL [Concomitant]
     Indication: HYPERTENSION
     Dosage: 20 MG, DAILY

REACTIONS (7)
  - Haemoptysis [Unknown]
  - Oral pain [Recovering/Resolving]
  - Gingival pain [Recovering/Resolving]
  - Oropharyngeal pain [Recovering/Resolving]
  - Glossodynia [Recovering/Resolving]
  - Nodule [Unknown]
  - Off label use [Unknown]
